FAERS Safety Report 23602664 (Version 3)
Quarter: 2024Q2

REPORT INFORMATION
  Report Type: Spontaneous
  Country: IT (occurrence: IT)
  Receive Date: 20240306
  Receipt Date: 20240422
  Transmission Date: 20240716
  Serious: Yes (Hospitalization)
  Sender: FDA-Public Use
  Company Number: JP-CHEPLA-2023011572

PATIENT
  Age: 59 Year
  Sex: Male
  Weight: 75.4 kg

DRUGS (16)
  1. PACLITAXEL [Suspect]
     Active Substance: PACLITAXEL
     Indication: Bladder squamous cell carcinoma stage III
     Dosage: 80 MILLIGRAM/SQ. METER (DAYS 1,8 AND 15 1 MONTH 12 DAYS)
     Route: 042
     Dates: start: 20230830, end: 20231011
  2. BUPARLISIB [Suspect]
     Active Substance: BUPARLISIB
     Indication: Bladder squamous cell carcinoma stage III
     Dosage: 100 MILLIGRAM, QD, 1 MONTH 13 DAYS
     Route: 048
     Dates: start: 20230829, end: 20231011
  3. BUPARLISIB [Suspect]
     Active Substance: BUPARLISIB
     Dosage: UNK
     Route: 065
     Dates: start: 20230904, end: 20231011
  4. Aminotrofic [Concomitant]
     Dosage: UNK
     Route: 065
     Dates: start: 20230802
  5. NALDEMEDINE [Concomitant]
     Active Substance: NALDEMEDINE
     Indication: Chemotherapy
     Dosage: ONGOING
     Route: 065
     Dates: start: 20230802
  6. ACETAMINOPHEN [Concomitant]
     Active Substance: ACETAMINOPHEN
     Dosage: UNK
     Route: 065
     Dates: start: 20230802
  7. MORPHINE SULFATE [Concomitant]
     Active Substance: MORPHINE SULFATE
     Dosage: UNK
     Route: 065
     Dates: start: 20230802
  8. LACTULOSE [Concomitant]
     Active Substance: LACTULOSE
     Dosage: UNK
     Route: 065
     Dates: start: 20230802
  9. PANTOPRAZOLE [Concomitant]
     Active Substance: PANTOPRAZOLE
     Dosage: ONGOING
     Route: 065
     Dates: start: 20230802
  10. INDOMETHACIN [Concomitant]
     Active Substance: INDOMETHACIN
     Dosage: UNK
     Route: 065
     Dates: start: 20230714
  11. CHOLECALCIFEROL [Concomitant]
     Active Substance: CHOLECALCIFEROL
     Dosage: UNK
     Route: 065
     Dates: start: 20230714
  12. FENTANYL CITRATE [Concomitant]
     Active Substance: FENTANYL CITRATE
     Dosage: UNK
     Route: 065
     Dates: start: 20230811
  13. DEXAMETHASONE [Concomitant]
     Active Substance: DEXAMETHASONE
     Dosage: UNK
     Route: 065
     Dates: start: 20230905, end: 20230905
  14. ERYTHROPOIETIN [Concomitant]
     Active Substance: ERYTHROPOIETIN
     Dosage: UNK
     Route: 065
     Dates: start: 20230807
  15. LEVOTHYROXINE [Concomitant]
     Active Substance: LEVOTHYROXINE\LEVOTHYROXINE SODIUM
     Dosage: UNK
     Route: 065
     Dates: start: 20230811
  16. POLYETHYLENE GLYCOLS [Concomitant]
     Active Substance: POLYETHYLENE GLYCOLS
     Dosage: UNK
     Route: 065
     Dates: start: 20230802

REACTIONS (3)
  - Fatigue [Not Recovered/Not Resolved]
  - Dysphagia [Unknown]
  - Nausea [Recovered/Resolved]

NARRATIVE: CASE EVENT DATE: 20230905
